FAERS Safety Report 9617921 (Version 4)
Quarter: 2013Q4

REPORT INFORMATION
  Report Type: Spontaneous
  Country: CA (occurrence: CA)
  Receive Date: 20131011
  Receipt Date: 20131220
  Transmission Date: 20140711
  Serious: Yes (Hospitalization, Other)
  Sender: FDA-Public Use
  Company Number: CA-ABBVIE-13P-028-1081000-00

PATIENT
  Age: 33 Year
  Sex: Male
  Weight: 92.5 kg

DRUGS (11)
  1. NORVIR [Suspect]
     Indication: HIV INFECTION
     Route: 048
     Dates: end: 20121001
  2. KIVEXA [Suspect]
     Indication: HIV INFECTION
     Route: 048
     Dates: start: 20100916, end: 20120930
  3. KIVEXA [Suspect]
     Dosage: TAKEN A MONTH SUPPLY IN ONE DAY
     Route: 048
     Dates: start: 20121001, end: 20121001
  4. PREZISTA [Suspect]
     Indication: HIV INFECTION
     Route: 048
     Dates: start: 20100603, end: 20120930
  5. PREZISTA [Suspect]
     Dosage: A MONTHS SUPPLY IN ONE DAY
     Route: 048
     Dates: start: 20121001, end: 20121001
  6. ACYCLOVIR [Concomitant]
     Indication: PRODUCT USED FOR UNKNOWN INDICATION
  7. CIPRALEX [Concomitant]
     Indication: PRODUCT USED FOR UNKNOWN INDICATION
  8. SYMBICORT [Concomitant]
     Indication: PRODUCT USED FOR UNKNOWN INDICATION
     Dosage: ONE AS NEEDED
     Route: 055
  9. VENTOLIN [Concomitant]
     Indication: PRODUCT USED FOR UNKNOWN INDICATION
  10. VIAGRA [Concomitant]
     Indication: PRODUCT USED FOR UNKNOWN INDICATION
  11. WELLBUTRIN [Concomitant]
     Indication: PRODUCT USED FOR UNKNOWN INDICATION

REACTIONS (10)
  - Suicide attempt [Recovered/Resolved]
  - Blood bilirubin increased [Recovered/Resolved]
  - Liver function test abnormal [Recovered/Resolved]
  - Intentional overdose [Recovered/Resolved]
  - Nausea [Recovered/Resolved]
  - Vomiting [Recovered/Resolved]
  - Hepatic enzyme increased [Recovered/Resolved]
  - Drug abuse [Recovered/Resolved]
  - Malaise [Recovered/Resolved]
  - Laboratory test abnormal [Recovered/Resolved]
